FAERS Safety Report 21757891 (Version 1)
Quarter: 2022Q4

REPORT INFORMATION
  Report Type: Spontaneous
  Country: US (occurrence: None)
  Receive Date: 20221221
  Receipt Date: 20221221
  Transmission Date: 20230112
  Serious: No
  Sender: FDA-Public Use
  Company Number: US-ROCHE-3065874

PATIENT

DRUGS (2)
  1. ACTIVASE [Suspect]
     Active Substance: ALTEPLASE
     Indication: Product used for unknown indication
     Route: 042
  2. ACTIVASE [Suspect]
     Active Substance: ALTEPLASE

REACTIONS (3)
  - Device issue [Unknown]
  - Wrong technique in device usage process [Unknown]
  - No adverse event [Unknown]
